FAERS Safety Report 6389283-9 (Version None)
Quarter: 2009Q4

REPORT INFORMATION
  Report Type: 
  Country: None (occurrence: None)
  Receive Date: 20091006
  Receipt Date: 20090929
  Transmission Date: 20100525
  Serious: Yes (Death, Disabling, Other)
  Sender: FDA-Public Use
  Company Number: PHEH2008US07593

PATIENT
  Sex: Male

DRUGS (2)
  1. ZOMETA [Suspect]
     Dosage: UNK, UNK
     Dates: start: 20060501
  2. CHEMOTHERAPEUTICS NOS [Concomitant]
     Dosage: UNK
     Dates: end: 20070601

REACTIONS (24)
  - ACTIVITIES OF DAILY LIVING IMPAIRED [None]
  - ANAEMIA [None]
  - ANHEDONIA [None]
  - ANXIETY [None]
  - BONE DISORDER [None]
  - DEATH [None]
  - DEBRIDEMENT [None]
  - DENTAL ALVEOLAR ANOMALY [None]
  - DISABILITY [None]
  - FISTULA [None]
  - HYPOACUSIS [None]
  - IMPAIRED HEALING [None]
  - INJURY [None]
  - LOOSE TOOTH [None]
  - MENTAL DISORDER [None]
  - METASTASES TO BONE [None]
  - OSTEONECROSIS [None]
  - PAIN [None]
  - PERIODONTAL DISEASE [None]
  - PURULENCE [None]
  - RESPIRATORY ARREST [None]
  - RESTLESSNESS [None]
  - TINNITUS [None]
  - TOOTH EXTRACTION [None]
